FAERS Safety Report 8192005-2 (Version None)
Quarter: 2012Q1

REPORT INFORMATION
  Report Type: 
  Country: None (occurrence: None)
  Receive Date: 20120307
  Receipt Date: 20120304
  Transmission Date: 20120608
  Serious: Yes (Death, Hospitalization, Other)
  Sender: FDA-Public Use
  Company Number: PHHY2012NL006517

PATIENT
  Sex: Female

DRUGS (3)
  1. ANTIBIOTICS [Concomitant]
  2. SANDOSTATIN LAR [Suspect]
     Indication: PANCREATIC NEUROENDOCRINE TUMOUR
     Dosage: 30 MG, QW3
  3. DIURETICS [Concomitant]

REACTIONS (3)
  - DEATH [None]
  - CARDIAC DISORDER [None]
  - POST PROCEDURAL COMPLICATION [None]
